FAERS Safety Report 11226425 (Version 1)
Quarter: 2015Q2

REPORT INFORMATION
  Report Type: Report from Study
  Country: IT (occurrence: IT)
  Receive Date: 20150629
  Receipt Date: 20150629
  Transmission Date: 20150821
  Serious: Yes (Other)
  Sender: FDA-Public Use
  Company Number: PHHY2015IT076857

PATIENT
  Age: 82 Year
  Sex: Male

DRUGS (2)
  1. SANDOSTATIN LAR DEPOT [Suspect]
     Active Substance: OCTREOTIDE ACETATE
     Indication: PRODUCT USED FOR UNKNOWN INDICATION
     Dosage: 30 MG, EVERY 3 WEEKS
     Route: 065
     Dates: start: 201212
  2. SANDOSTATIN LAR DEPOT [Suspect]
     Active Substance: OCTREOTIDE ACETATE
     Dosage: 30 MG, EVERY 3/ 4 WEEKS
     Route: 065
     Dates: start: 201309

REACTIONS (9)
  - Diarrhoea [Unknown]
  - Vertigo [Unknown]
  - Vomiting [Unknown]
  - Cardiac failure [Unknown]
  - Pleural effusion [Unknown]
  - Abdominal pain [Unknown]
  - Fall [Unknown]
  - Dyspnoea [Unknown]
  - Nausea [Unknown]

NARRATIVE: CASE EVENT DATE: 201302
